FAERS Safety Report 11537383 (Version 2)
Quarter: 2015Q4

REPORT INFORMATION
  Report Type: Spontaneous
  Country: CA (occurrence: CA)
  Receive Date: 20150922
  Receipt Date: 20151001
  Transmission Date: 20160304
  Serious: Yes (Life-Threatening, Hospitalization, Other)
  Sender: FDA-Public Use
  Company Number: CA-APOTEX-2015AP007465

PATIENT
  Age: 58 Year
  Sex: Male

DRUGS (3)
  1. APO-CARBAMAZEPINE CR [Suspect]
     Active Substance: CARBAMAZEPINE
     Indication: PRODUCT USED FOR UNKNOWN INDICATION
     Dosage: MORE THAN 14 G OF SUSTAINED-RELEASE CARBAMAZEPINE
     Route: 048
  2. ETHANOL [Suspect]
     Active Substance: ALCOHOL
     Indication: OVERDOSE
     Dosage: UNK
     Route: 065
  3. APO-LORAZEPAM [Suspect]
     Active Substance: LORAZEPAM
     Indication: PRODUCT USED FOR UNKNOWN INDICATION
     Dosage: 60 MG, UNK
     Route: 048

REACTIONS (6)
  - Overdose [Recovering/Resolving]
  - Seizure [Recovering/Resolving]
  - Thrombocytopenia [Unknown]
  - Ileus [Recovered/Resolved]
  - Toxicity to various agents [Recovered/Resolved]
  - Stupor [Recovering/Resolving]

NARRATIVE: CASE EVENT DATE: 20130715
